FAERS Safety Report 6618200-9 (Version None)
Quarter: 2010Q1

REPORT INFORMATION
  Report Type: 
  Country: None (occurrence: None)
  Receive Date: 20100308
  Receipt Date: 20100224
  Transmission Date: 20100710
  Serious: Yes (Death, Life-Threatening, Hospitalization)
  Sender: FDA-Public Use
  Company Number: JP-PFIZER INC-2009223352

PATIENT
  Age: 74 Year
  Sex: Male
  Weight: 48.9 kg

DRUGS (1)
  1. SUNITINIB MALATE [Suspect]
     Indication: RENAL CELL CARCINOMA
     Dosage: 50 MG, 1X/DAY
     Route: 048
     Dates: start: 20090518, end: 20091006

REACTIONS (4)
  - BRAIN OEDEMA [None]
  - DISEASE PROGRESSION [None]
  - PLATELET COUNT DECREASED [None]
  - RENAL CELL CARCINOMA [None]
